FAERS Safety Report 21340620 (Version 1)
Quarter: 2022Q3

REPORT INFORMATION
  Report Type: Spontaneous
  Country: SG (occurrence: SG)
  Receive Date: 20220916
  Receipt Date: 20220916
  Transmission Date: 20221027
  Serious: Yes (Hospitalization, Other)
  Sender: FDA-Public Use
  Company Number: SG-CELLTRION INC.-2022SG014749

PATIENT

DRUGS (2)
  1. RITUXIMAB [Suspect]
     Active Substance: RITUXIMAB
     Indication: Systemic scleroderma
  2. PREDNISOLONE [Concomitant]
     Active Substance: PREDNISOLONE
     Indication: Systemic scleroderma
     Dosage: 10 MG, DAILY

REACTIONS (3)
  - COVID-19 [Recovered/Resolved]
  - Pneumonia cytomegaloviral [Recovered/Resolved]
  - Off label use [Unknown]
